FAERS Safety Report 7807749-9 (Version None)
Quarter: 2011Q4

REPORT INFORMATION
  Report Type: 
  Country: None (occurrence: None)
  Receive Date: 20111011
  Receipt Date: 20111004
  Transmission Date: 20120403
  Serious: Yes (Disabling, Other)
  Sender: FDA-Public Use
  Company Number: US-TEVA-304365USA

PATIENT
  Sex: Female

DRUGS (2)
  1. PRAVASTATIN [Suspect]
  2. PRAVASTATIN SODIUM [Suspect]

REACTIONS (5)
  - EYE PAIN [None]
  - PAIN IN EXTREMITY [None]
  - VISION BLURRED [None]
  - BEDRIDDEN [None]
  - ARTHRALGIA [None]
